FAERS Safety Report 15898473 (Version 1)
Quarter: 2019Q1

REPORT INFORMATION
  Report Type: Spontaneous
  Country: DE (occurrence: DE)
  Receive Date: 20190201
  Receipt Date: 20190201
  Transmission Date: 20190417
  Serious: Yes (Hospitalization)
  Sender: FDA-Public Use
  Company Number: DE-ACCORD-104626

PATIENT
  Age: 66 Year
  Sex: Male
  Weight: 86 kg

DRUGS (12)
  1. RANITIDINE. [Concomitant]
     Active Substance: RANITIDINE
     Dosage: 150 MG, 0-0-1-0, TABLETS
     Route: 048
  2. LIDOCAINE. [Concomitant]
     Active Substance: LIDOCAINE
     Dosage: REQUIREMENT
  3. NEBILET [Concomitant]
     Active Substance: NEBIVOLOL
     Dosage: 5 MG, 0.5-0-0-0, TABLETTEN
     Route: 048
  4. ONDANSETRON [Concomitant]
     Active Substance: ONDANSETRON
     Dosage: 8 MG, SCHEMA, TABLETS
     Route: 048
  5. NOVALGIN (METAMIZOLE SODIUM) [Concomitant]
     Active Substance: METAMIZOLE SODIUM
     Dosage: 40 GTT, 1-1-1-1, TROPFEN
     Route: 048
  6. VERGENTAN [Concomitant]
     Active Substance: ALIZAPRIDE HYDROCHLORIDE
     Dosage: 50 MG, SCHEMA, TABLETS
     Route: 048
  7. MOVICOL [Concomitant]
     Active Substance: POLYETHYLENE GLYCOL 3350\POTASSIUM CHLORIDE\SODIUM BICARBONATE\SODIUM CHLORIDE
     Dosage: 13.125/ 0.35/ 0.18/ 0.05 G, 1-0-0-0, SACHET
     Route: 048
  8. FENTANYL. [Concomitant]
     Active Substance: FENTANYL
     Dosage: 37.5 UG/H, SCHEMA, PFLASTER TRANSDERMAL
     Route: 062
  9. HYDROCHLOROTHIAZIDE/RAMIPRIL [Concomitant]
     Dosage: 5/25MG, 1-0-0-0, TABLETS
     Route: 048
  10. ASPIRIN. [Concomitant]
     Active Substance: ASPIRIN
     Dosage: 100 MG, 1-0-0-0, TABLETTEN
     Route: 048
  11. INEGY [Concomitant]
     Active Substance: EZETIMIBE\SIMVASTATIN
     Dosage: 10/80 MG, 0-0-1-0, TABLETS
     Route: 048
  12. CARBOPLATIN. [Suspect]
     Active Substance: CARBOPLATIN
     Indication: PRODUCT USED FOR UNKNOWN INDICATION
     Dosage: 92 MG / TAG, SCHEMA, INJECTION / INFUSION
     Route: 042

REACTIONS (4)
  - Dyspnoea [Unknown]
  - Cough [Unknown]
  - Productive cough [Unknown]
  - Hypertension [Unknown]
